FAERS Safety Report 8287454-8 (Version None)
Quarter: 2012Q2

REPORT INFORMATION
  Report Type: 
  Country: None (occurrence: None)
  Receive Date: 20120411
  Receipt Date: 20120403
  Transmission Date: 20120825
  Serious: Yes (Death, Hospitalization)
  Sender: FDA-Public Use
  Company Number: 2012SP012598

PATIENT
  Age: 64 Year
  Sex: Male
  Weight: 63 kg

DRUGS (5)
  1. PROPRANOLOL [Concomitant]
  2. PEG-INTRON [Suspect]
     Indication: HEPATITIS C
     Dosage: 100 MCG;QW;SC
     Route: 058
     Dates: start: 20120113, end: 20120318
  3. RIBAVIRIN [Suspect]
     Indication: HEPATITIS C
     Dosage: 800 MG;QD;PO
     Route: 048
     Dates: start: 20120113, end: 20120318
  4. VICTRELIS [Suspect]
     Indication: HEPATITIS C
     Dosage: 800 MG;Q8H;PO
     Route: 048
     Dates: start: 20120210, end: 20120318
  5. AMILORIDE HYDROCHLORIDE [Concomitant]

REACTIONS (21)
  - ANAEMIA [None]
  - ACUTE RESPIRATORY FAILURE [None]
  - RENAL FAILURE [None]
  - HYPOTENSION [None]
  - HEPATIC FUNCTION ABNORMAL [None]
  - DISSEMINATED INTRAVASCULAR COAGULATION [None]
  - HEPATIC ENCEPHALOPATHY [None]
  - HAEMODIALYSIS [None]
  - PURULENT DISCHARGE [None]
  - TREATMENT FAILURE [None]
  - VENTRICULAR TACHYARRHYTHMIA [None]
  - CARDIAC ARREST [None]
  - ASCITES [None]
  - SOMNOLENCE [None]
  - ASTERIXIS [None]
  - LOBAR PNEUMONIA [None]
  - DISORIENTATION [None]
  - DYSPNOEA [None]
  - MULTI-ORGAN FAILURE [None]
  - GENERAL PHYSICAL HEALTH DETERIORATION [None]
  - METABOLIC ACIDOSIS [None]
